FAERS Safety Report 6549040-7 (Version None)
Quarter: 2010Q1

REPORT INFORMATION
  Report Type: 
  Country: None (occurrence: None)
  Receive Date: 20100119
  Receipt Date: 20100106
  Transmission Date: 20100710
  Serious: Yes (Hospitalization)
  Sender: FDA-Public Use
  Company Number: FABR-1001139

PATIENT
  Age: 60 Year
  Sex: Male
  Weight: 72 kg

DRUGS (15)
  1. FABRAZYME [Suspect]
     Indication: FABRY'S DISEASE
     Dosage: 1 MG/KG , Q2W, INTRAVENOUS; 0.5 MG/KG , Q3W, INTRAVENOUS
     Route: 042
     Dates: start: 20010614, end: 20090101
  2. FABRAZYME [Suspect]
     Indication: FABRY'S DISEASE
     Dosage: 1 MG/KG , Q2W, INTRAVENOUS; 0.5 MG/KG , Q3W, INTRAVENOUS
     Route: 042
     Dates: start: 20090101
  3. COUMADIN [Concomitant]
  4. AVAPRO [Concomitant]
  5. CELLCEPT [Concomitant]
  6. FLOVENT [Concomitant]
  7. CALCIUM CARBONATE [Concomitant]
  8. LASIX [Concomitant]
  9. TOPROL-XL [Concomitant]
  10. LIPITOR [Concomitant]
  11. PREDNISONE [Concomitant]
  12. PROGRAF [Concomitant]
  13. PROTONIX [Concomitant]
  14. FLONASE [Concomitant]
  15. ALLPURINOL [Concomitant]

REACTIONS (8)
  - CARDIAC ANEURYSM [None]
  - CARDIAC FAILURE CONGESTIVE [None]
  - CEREBROVASCULAR ACCIDENT [None]
  - CORONARY ARTERY DISEASE [None]
  - INTRACRANIAL ANEURYSM [None]
  - PNEUMONIA ASPIRATION [None]
  - RENAL TRANSPLANT [None]
  - RESPIRATORY DISTRESS [None]
